FAERS Safety Report 6344519-5 (Version None)
Quarter: 2009Q3

REPORT INFORMATION
  Report Type: 
  Country: None (occurrence: None)
  Receive Date: 20090908
  Receipt Date: 20090825
  Transmission Date: 20100115
  Serious: Yes (Other)
  Sender: FDA-Public Use
  Company Number: PL-ROCHE-652728

PATIENT

DRUGS (1)
  1. PEGASYS [Suspect]
     Indication: HEPATITIS C
     Dosage: DISCONTINUED.
     Route: 065

REACTIONS (2)
  - MESENTERIC VEIN THROMBOSIS [None]
  - SPLENIC VEIN THROMBOSIS [None]
